FAERS Safety Report 19959409 (Version 1)
Quarter: 2021Q4

REPORT INFORMATION
  Report Type: Spontaneous
  Country: US (occurrence: US)
  Receive Date: 20211015
  Receipt Date: 20211015
  Transmission Date: 20220303
  Serious: No
  Sender: FDA-Public Use
  Company Number: None

PATIENT
  Age: 17 Year
  Sex: Female

DRUGS (1)
  1. HUMIRA [Suspect]
     Active Substance: ADALIMUMAB
     Indication: Crohn^s disease
     Dosage: OTHER FREQUENCY:EVERY 14 DAYS;
     Route: 058
     Dates: start: 20210430

REACTIONS (3)
  - Therapeutic product effect decreased [None]
  - Symptom recurrence [None]
  - Antibody test positive [None]

NARRATIVE: CASE EVENT DATE: 20210901
